FAERS Safety Report 7915537 (Version 7)
Quarter: 2013Q4

REPORT INFORMATION
  Report Type: Spontaneous
  Country: AU (occurrence: AU)
  Receive Date: 20110426
  Receipt Date: 20131118
  Transmission Date: 20140711
  Serious: Yes (Death, Hospitalization, Other)
  Sender: FDA-Public Use
  Company Number: AU-AMGEN-AUSSP2011020821

PATIENT
  Age: 79 Year
  Sex: Female
  Weight: 52.5 kg

DRUGS (9)
  1. PROLIA [Suspect]
     Indication: OSTEOPOROSIS
     Dosage: 60 MG, Q6MO
     Route: 058
     Dates: start: 20110305, end: 20110305
  2. SEVELAMER [Suspect]
     Indication: BLOOD PHOSPHORUS INCREASED
     Dosage: 800 MG, TID
     Route: 065
  3. CHOLECALCIFEROL [Concomitant]
     Indication: VITAMIN D DECREASED
     Dosage: 1000 UNK, QD
  4. LERCANIDIPINE [Concomitant]
     Dosage: 20 MG, QD
  5. ALLOPURINOL [Concomitant]
  6. ATENOLOL [Concomitant]
  7. GEMFIBROZIL [Concomitant]
  8. NICORANDIL [Concomitant]
  9. OMEPRAZOLE [Concomitant]

REACTIONS (16)
  - Cardiac arrest [Fatal]
  - Pneumonia aspiration [Fatal]
  - Cutaneous vasculitis [Recovering/Resolving]
  - Oedema peripheral [Recovering/Resolving]
  - Ulcer [Not Recovered/Not Resolved]
  - Haemorrhage [Unknown]
  - Skin exfoliation [Unknown]
  - Secretion discharge [Unknown]
  - Alopecia [Unknown]
  - Pruritus [Unknown]
  - Peripheral vascular disorder [Unknown]
  - Compartment syndrome [Unknown]
  - Blood parathyroid hormone increased [Recovered/Resolved]
  - Hypophosphataemia [Recovered/Resolved]
  - Hypocalcaemia [Recovered/Resolved]
  - Erythema [Unknown]
